FAERS Safety Report 10932587 (Version 6)
Quarter: 2015Q3

REPORT INFORMATION
  Report Type: Spontaneous
  Country: US (occurrence: None)
  Receive Date: 20150318
  Receipt Date: 20150810
  Transmission Date: 20151125
  Serious: Yes (Hospitalization, Other)
  Sender: FDA-Public Use
  Company Number: DSU-2014-122765

PATIENT
  Age: 78 Year
  Sex: Male
  Weight: 86.2 kg

DRUGS (10)
  1. TOPROL (METOPROLOL SUCCINATE) [Concomitant]
  2. VICODIN [Concomitant]
     Active Substance: ACETAMINOPHEN\HYDROCODONE BITARTRATE
  3. BENICAR HCT [Suspect]
     Active Substance: HYDROCHLOROTHIAZIDE\OLMESARTAN MEDOXOMIL
     Indication: HYPERTENSION
     Dosage: 40/12.5 MG, QD
     Dates: start: 20130115
  4. METOPROLOL (METOPROLOL) [Concomitant]
     Active Substance: METOPROLOL
  5. SIMVASTATIN (SIMVASTATIN) [Concomitant]
     Active Substance: SIMVASTATIN
  6. COUMADIN [Concomitant]
     Active Substance: WARFARIN SODIUM
  7. COZAAR [Concomitant]
     Active Substance: LOSARTAN POTASSIUM
  8. LUCENTIS (RANIBIZUMAB) [Concomitant]
  9. BENICAR [Suspect]
     Active Substance: OLMESARTAN MEDOXOMIL
     Indication: HYPERTENSION
     Route: 048
     Dates: start: 20120509
  10. ZOCOR [Concomitant]
     Active Substance: SIMVASTATIN

REACTIONS (25)
  - Hypotension [None]
  - Oesophagitis [None]
  - Weight decreased [None]
  - Red blood cell count decreased [None]
  - Malabsorption [None]
  - Malnutrition [None]
  - Presyncope [None]
  - Epigastric discomfort [None]
  - Haemoglobin decreased [None]
  - Haematocrit decreased [None]
  - Blindness transient [None]
  - Lymphocytosis [None]
  - Endophthalmitis [None]
  - Diarrhoea [None]
  - Acute kidney injury [None]
  - Asthenia [None]
  - Eye infection bacterial [None]
  - Diverticulum [None]
  - Haemorrhoids [None]
  - Duodenitis [None]
  - Dehydration [None]
  - Coagulopathy [None]
  - International normalised ratio increased [None]
  - Occult blood positive [None]
  - Bedridden [None]

NARRATIVE: CASE EVENT DATE: 201301
